FAERS Safety Report 4894884-0 (Version None)
Quarter: 2006Q1

REPORT INFORMATION
  Report Type: 
  Country: None (occurrence: None)
  Receive Date: 20060130
  Receipt Date: 20050118
  Transmission Date: 20060701
  Serious: No
  Sender: FDA-Public Use
  Company Number: US-BRISTOL-MYERS SQUIBB COMPANY-12830089

PATIENT
  Age: 45 Year
  Sex: Female

DRUGS (4)
  1. METFORMIN HCL [Suspect]
     Indication: DIABETES MELLITUS
     Route: 048
     Dates: start: 20041001
  2. XANAX [Concomitant]
  3. TORADOL [Concomitant]
  4. FLEXERIL [Concomitant]

REACTIONS (1)
  - RASH [None]
